FAERS Safety Report 14179524 (Version 6)
Quarter: 2018Q1

REPORT INFORMATION
  Report Type: Report from Study
  Country: US (occurrence: US)
  Receive Date: 20171110
  Receipt Date: 20180206
  Transmission Date: 20180508
  Serious: No
  Sender: FDA-Public Use
  Company Number: US-PFIZER INC-2017467356

PATIENT
  Age: 56 Year
  Sex: Female

DRUGS (1)
  1. IBRANCE [Suspect]
     Active Substance: PALBOCICLIB
     Indication: BREAST CANCER METASTATIC
     Dosage: 125 MG, CYCLIC (DAILY / 3 WEEKS ON, 1 WEEK OFF)
     Route: 048
     Dates: start: 20171018

REACTIONS (13)
  - Diarrhoea [Unknown]
  - Platelet count decreased [Unknown]
  - Haematocrit decreased [Unknown]
  - Neoplasm progression [Unknown]
  - Alopecia [Unknown]
  - Insomnia [Unknown]
  - Vomiting [Unknown]
  - Decreased appetite [Unknown]
  - Fatigue [Not Recovered/Not Resolved]
  - Haemoglobin decreased [Unknown]
  - Nausea [Unknown]
  - Red blood cell count decreased [Unknown]
  - Thirst [Unknown]

NARRATIVE: CASE EVENT DATE: 2017
